FAERS Safety Report 5107615-6 (Version None)
Quarter: 2006Q3

REPORT INFORMATION
  Report Type: 
  Country: None (occurrence: None)
  Receive Date: 20060919
  Receipt Date: 20060906
  Transmission Date: 20061208
  Serious: Yes (Death)
  Sender: FDA-Public Use
  Company Number: AT-BRISTOL-MYERS SQUIBB COMPANY-13500665

PATIENT
  Age: 40 Year
  Sex: Female

DRUGS (2)
  1. ABILIFY [Suspect]
     Indication: SCHIZOPHRENIA
     Dosage: 5 MG DAILY 11-JUL-2006 TO 23-JUL-2006; 10 MG DAILY 24-JUL-2006 TO 10-AUG-2006
     Route: 048
     Dates: start: 20060711, end: 20060810
  2. LEPONEX [Suspect]

REACTIONS (1)
  - COMPLETED SUICIDE [None]
